FAERS Safety Report 4750991-4 (Version None)
Quarter: 2005Q3

REPORT INFORMATION
  Report Type: 
  Country: None (occurrence: None)
  Receive Date: 20050822
  Receipt Date: 20050810
  Transmission Date: 20060218
  Serious: Yes (Other)
  Sender: FDA-Public Use
  Company Number: 2005115293

PATIENT
  Age: 16 Year
  Sex: Female
  Weight: 77.1115 kg

DRUGS (1)
  1. BENADRYL [Suspect]
     Indication: HYPERSENSITIVITY
     Dosage: 2 TABS ONCE, ORAL
     Route: 048
     Dates: start: 20050810, end: 20050810

REACTIONS (3)
  - EYE DISORDER [None]
  - FALL [None]
  - LOSS OF CONSCIOUSNESS [None]
